FAERS Safety Report 25056235 (Version 1)
Quarter: 2025Q1

REPORT INFORMATION
  Report Type: Report from Study
  Country: US (occurrence: US)
  Receive Date: 20250309
  Receipt Date: 20250309
  Transmission Date: 20250408
  Serious: Yes (Hospitalization)
  Sender: ALEXION PHARMACEUTICALS
  Company Number: US-AstraZeneca-CH-00822056A

PATIENT
  Age: 81 Year

DRUGS (2)
  1. OLAPARIB [Suspect]
     Active Substance: OLAPARIB
     Indication: Prostate cancer
     Dosage: 300 MILLIGRAM, BID
  2. ORGOVYX [Concomitant]
     Active Substance: RELUGOLIX
     Route: 065

REACTIONS (3)
  - Gait disturbance [Unknown]
  - Headache [Unknown]
  - Cardiac disorder [Unknown]
